FAERS Safety Report 8905760 (Version 2)
Quarter: 2013Q1

REPORT INFORMATION
  Report Type: Spontaneous
  Country: US (occurrence: US)
  Receive Date: 20121113
  Receipt Date: 20130129
  Transmission Date: 20140127
  Serious: Yes (Other)
  Sender: FDA-Public Use
  Company Number: US-GLAXOSMITHKLINE-A0999961A

PATIENT
  Age: 69 Year
  Sex: Female

DRUGS (4)
  1. SEREVENT [Suspect]
     Indication: ASTHMA
     Dosage: 1PUFF TWICE PER DAY
     Route: 055
     Dates: start: 2005
  2. FLOVENT [Concomitant]
  3. ALBUTEROL SULFATE [Concomitant]
  4. NEBULIZER [Concomitant]

REACTIONS (3)
  - Pneumonia [Recovered/Resolved]
  - Retching [Recovered/Resolved]
  - Product quality issue [Unknown]
